FAERS Safety Report 25439953 (Version 2)
Quarter: 2025Q3

REPORT INFORMATION
  Report Type: Report from Study
  Country: IN (occurrence: IN)
  Receive Date: 20250616
  Receipt Date: 20250809
  Transmission Date: 20251021
  Serious: Yes (Other)
  Sender: ALEXION PHARMACEUTICALS
  Company Number: IN-AstraZeneca-CH-00891332A

PATIENT
  Age: 61 Year
  Sex: Male
  Weight: 38 kg

DRUGS (1)
  1. OLAPARIB [Suspect]
     Active Substance: OLAPARIB
     Dosage: 150 MILLIGRAM, BID
     Dates: start: 20250225

REACTIONS (1)
  - Pseudomonas infection [Not Recovered/Not Resolved]
